FAERS Safety Report 16856438 (Version 1)
Quarter: 2019Q3

REPORT INFORMATION
  Report Type: Spontaneous
  Country: IT (occurrence: IT)
  Receive Date: 20190926
  Receipt Date: 20190926
  Transmission Date: 20191005
  Serious: Yes (Other)
  Sender: FDA-Public Use
  Company Number: IT-TEVA-2019-IT-1112721

PATIENT
  Age: 53 Year
  Sex: Female

DRUGS (6)
  1. METHOTREXATE. [Suspect]
     Active Substance: METHOTREXATE
     Indication: PSORIATIC ARTHROPATHY
     Dosage: 7.5 MG
     Route: 030
     Dates: start: 20190531, end: 20190904
  2. DIBASE [Concomitant]
     Active Substance: CHOLECALCIFEROL
  3. BENEPALI 25 MG SOLUTION FOR INJECTION IN PRE-FILLED SYRINGE [Suspect]
     Active Substance: ETANERCEPT
     Indication: PSORIATIC ARTHROPATHY
     Dosage: 50 MG
     Route: 058
     Dates: start: 20170107, end: 20190904
  4. ENANTONE LP [Concomitant]
     Active Substance: LEUPROLIDE ACETATE
  5. PANTORC [Concomitant]
     Active Substance: PANTOPRAZOLE SODIUM
  6. PLAVIX [Concomitant]
     Active Substance: CLOPIDOGREL BISULFATE

REACTIONS (2)
  - Alopecia [Recovering/Resolving]
  - Cystitis haemorrhagic [Recovering/Resolving]

NARRATIVE: CASE EVENT DATE: 20190904
